FAERS Safety Report 4961029-8 (Version None)
Quarter: 2006Q1

REPORT INFORMATION
  Report Type: 
  Country: None (occurrence: None)
  Receive Date: 20060328
  Receipt Date: 20060320
  Transmission Date: 20060701
  Serious: Yes (Hospitalization, Other)
  Sender: FDA-Public Use
  Company Number: HQWYE420421MAR06

PATIENT
  Age: 82 Year
  Sex: Male

DRUGS (1)
  1. AMIODARONE (AMIODARONE, TABLET) [Suspect]
     Indication: VENTRICULAR TACHYCARDIA
     Dosage: 200 MG 1X PER 1 DAY, ORAL
     Route: 048
     Dates: start: 20030501, end: 20050101

REACTIONS (4)
  - ANOREXIA [None]
  - COMPUTERISED TOMOGRAM ABDOMEN ABNORMAL [None]
  - HEPATIC FUNCTION ABNORMAL [None]
  - SYNCOPE [None]
